FAERS Safety Report 5471903-4 (Version None)
Quarter: 2007Q3

REPORT INFORMATION
  Report Type: 
  Country: None (occurrence: None)
  Receive Date: 20070928
  Receipt Date: 20070724
  Transmission Date: 20080115
  Serious: No
  Sender: FDA-Public Use
  Company Number: US-BRISTOL-MYERS SQUIBB COMPANY-13854054

PATIENT
  Age: 79 Year
  Sex: Female
  Weight: 83 kg

DRUGS (11)
  1. DEFINITY [Suspect]
     Indication: STRESS ECHOCARDIOGRAM
     Route: 042
     Dates: start: 20070723, end: 20070723
  2. HYDROCHLOROTHIAZIDE [Concomitant]
  3. ATENOLOL [Concomitant]
  4. VERAPAMIL [Concomitant]
  5. LEVOXYL [Concomitant]
  6. PLAVIX [Concomitant]
  7. ACIPHEX [Concomitant]
  8. MECLIZINE [Concomitant]
  9. AMBIEN [Concomitant]
  10. CALCIUM [Concomitant]
  11. NPH INSULIN [Concomitant]

REACTIONS (3)
  - ABDOMINAL PAIN [None]
  - BACK PAIN [None]
  - CHEST PAIN [None]
